FAERS Safety Report 4819951-9 (Version None)
Quarter: 2005Q4

REPORT INFORMATION
  Report Type: 
  Country: None (occurrence: None)
  Receive Date: 20051102
  Receipt Date: 20051020
  Transmission Date: 20060501
  Serious: Yes (Hospitalization)
  Sender: FDA-Public Use
  Company Number: S05-FRA-03232-01

PATIENT
  Age: 91 Year
  Sex: Female

DRUGS (8)
  1. CITALOPRAM HYDROBROMIDE [Suspect]
     Dosage: 2 QD PO
     Route: 048
     Dates: end: 20050615
  2. ACUPAN [Suspect]
     Indication: OSTEOARTHRITIS
     Dosage: 2 QD PO
     Route: 048
     Dates: start: 20050608, end: 20050615
  3. DI-ANTALVIC [Suspect]
     Indication: OSTEOARTHRITIS
     Dosage: 6 QD PO
     Route: 048
     Dates: start: 20050608, end: 20050615
  4. CLONAZEPAM [Concomitant]
  5. OROCAL (CALCIUM CARBONATE) [Concomitant]
  6. PERIDYS (DOMPERIDONE) [Concomitant]
  7. LACTULOSE [Concomitant]
  8. PIPRAM (PIPEMIDIC ACID) [Concomitant]

REACTIONS (8)
  - ABDOMINAL PAIN UPPER [None]
  - COGNITIVE DISORDER [None]
  - CONFUSIONAL STATE [None]
  - DEPRESSION [None]
  - DISORIENTATION [None]
  - FALL [None]
  - MEMORY IMPAIRMENT [None]
  - RALES [None]
